FAERS Safety Report 7049107-3 (Version None)
Quarter: 2010Q4

REPORT INFORMATION
  Report Type: 
  Country: None (occurrence: None)
  Receive Date: 20101018
  Receipt Date: 20101008
  Transmission Date: 20110411
  Serious: No
  Sender: FDA-Public Use
  Company Number: US-JNJFOC-20100906354

PATIENT
  Sex: Female
  Weight: 54.43 kg

DRUGS (3)
  1. DURAGESIC-100 [Suspect]
     Indication: SURGERY
     Dosage: 100 UG/HR+ 50 UG/HR
     Route: 062
  2. DURAGESIC-100 [Suspect]
     Indication: SCIATICA
     Dosage: 100 UG/HR+ 50 UG/HR
     Route: 062
  3. DURAGESIC-100 [Suspect]
     Indication: NECK PAIN
     Dosage: 100 UG/HR+ 50 UG/HR
     Route: 062

REACTIONS (3)
  - OFF LABEL USE [None]
  - PRODUCT ADHESION ISSUE [None]
  - WRONG TECHNIQUE IN DRUG USAGE PROCESS [None]
